FAERS Safety Report 10149308 (Version 1)
Quarter: 2014Q2

REPORT INFORMATION
  Report Type: Spontaneous
  Country: BR (occurrence: BR)
  Receive Date: 20140502
  Receipt Date: 20140502
  Transmission Date: 20141212
  Serious: Yes (Death, Hospitalization, Other)
  Sender: FDA-Public Use
  Company Number: BR-AMGEN INC.-BRASP2014032010

PATIENT
  Age: 83 Year
  Sex: Female
  Weight: 70 kg

DRUGS (4)
  1. ENBREL [Suspect]
     Indication: RHEUMATOID ARTHRITIS
     Dosage: 50 MG, ONCE WEEKLY
     Route: 058
     Dates: start: 20120207, end: 201307
  2. LOSARTAN [Concomitant]
     Dosage: 50 MG, UNK
  3. ATENOLOL [Concomitant]
     Dosage: 25 MG, UNK
  4. ATENSINA [Concomitant]
     Dosage: UNK

REACTIONS (7)
  - Death [Fatal]
  - Cerebral haemorrhage [Unknown]
  - Respiratory failure [Unknown]
  - Blood pressure fluctuation [Unknown]
  - Cerebrovascular accident [Recovered/Resolved with Sequelae]
  - Infection [Unknown]
  - Septic shock [Unknown]
